FAERS Safety Report 11576535 (Version 1)
Quarter: 2015Q3

REPORT INFORMATION
  Report Type: Spontaneous
  Country: US (occurrence: US)
  Receive Date: 20150916
  Receipt Date: 20150916
  Transmission Date: 20151125
  Serious: No
  Sender: FDA-Public Use
  Company Number: US-ELI_LILLY_AND_COMPANY-US201305005900

PATIENT
  Sex: Female
  Weight: 40.82 kg

DRUGS (2)
  1. HUMALOG [Suspect]
     Active Substance: INSULIN LISPRO
     Indication: TYPE 2 DIABETES MELLITUS
     Dosage: 1 U, BID
     Route: 058
     Dates: start: 20130214
  2. LEVEMIR [Concomitant]
     Active Substance: INSULIN DETEMIR

REACTIONS (5)
  - Visual impairment [Unknown]
  - Blood glucose increased [Recovering/Resolving]
  - Scar [Unknown]
  - Fat tissue decreased [Unknown]
  - Asthenia [Unknown]
